FAERS Safety Report 9185697 (Version 1)
Quarter: 2013Q1

REPORT INFORMATION
  Report Type: Spontaneous
  Country: US (occurrence: US)
  Receive Date: 20130325
  Receipt Date: 20130325
  Transmission Date: 20140127
  Serious: No
  Sender: FDA-Public Use
  Company Number: US-009507513-1303USA005975

PATIENT
  Sex: Male

DRUGS (4)
  1. PEGINTRON [Suspect]
     Indication: HEPATITIS C
     Dosage: UNK
     Dates: start: 20130308
  2. VICTRELIS [Suspect]
     Dosage: UNK
     Route: 048
     Dates: start: 20130308
  3. REBETOL [Suspect]
     Dosage: UNK
     Route: 048
     Dates: start: 201302
  4. PAXIL [Concomitant]

REACTIONS (7)
  - Injection site erythema [Not Recovered/Not Resolved]
  - Chills [Not Recovered/Not Resolved]
  - Skin burning sensation [Not Recovered/Not Resolved]
  - Somnolence [Not Recovered/Not Resolved]
  - Fatigue [Not Recovered/Not Resolved]
  - Malaise [Not Recovered/Not Resolved]
  - Product quality issue [Unknown]
